FAERS Safety Report 5343370-2 (Version None)
Quarter: 2007Q2

REPORT INFORMATION
  Report Type: 
  Country: None (occurrence: None)
  Receive Date: 20070501
  Receipt Date: 20070126
  Transmission Date: 20071010
  Serious: No
  Sender: FDA-Public Use
  Company Number: 200618951US

PATIENT
  Age: 61 Year
  Sex: Female
  Weight: 65.91 kg

DRUGS (15)
  1. KETEK [Suspect]
     Indication: PLEURISY
     Dosage: 800 MG QD PO
     Route: 048
     Dates: start: 20061001, end: 20061005
  2. KETEK [Suspect]
     Indication: PLEURISY
     Dosage: 800 MG QD PO
     Route: 048
     Dates: start: 20061001, end: 20061001
  3. ERGOCALCIFEROL [Concomitant]
  4. CALCIUM PHOSPHATE [Concomitant]
  5. CALCIUM SODIUM LACTATE (CALCIUM WITH VITAMIN D ) [Concomitant]
  6. ASCORBIC ACID [Concomitant]
  7. TOCOPHERYL ACETATE   (VITAMIN E) [Concomitant]
  8. RETINOL [Concomitant]
  9. ZINC [Concomitant]
  10. CALCIUM CHLORIDE [Concomitant]
  11. VITAMINS NOS [Concomitant]
  12. VITAMIN B NOS (CENTRUM SILVER  GLUCOSAMINE [Concomitant]
  13. ALTACE [Concomitant]
  14. FISH OIL (OMEGA 3) [Concomitant]
  15. GLUCOSAMINE [Concomitant]

REACTIONS (7)
  - CHEST PAIN [None]
  - ERYTHEMA MULTIFORME [None]
  - FATIGUE [None]
  - OEDEMA PERIPHERAL [None]
  - PAIN [None]
  - PAIN OF SKIN [None]
  - RASH PRURITIC [None]
